FAERS Safety Report 11664966 (Version 2)
Quarter: 2015Q4

REPORT INFORMATION
  Report Type: Report from Study
  Country: US (occurrence: US)
  Receive Date: 20151027
  Receipt Date: 20151104
  Transmission Date: 20160304
  Serious: No
  Sender: FDA-Public Use
  Company Number: US-SA-2015SA168123

PATIENT
  Age: 61 Year
  Sex: Female

DRUGS (1)
  1. KYNAMRO [Suspect]
     Active Substance: MIPOMERSEN SODIUM
     Indication: TYPE IIA HYPERLIPIDAEMIA
     Route: 058
     Dates: start: 20150820, end: 20151008

REACTIONS (6)
  - Pruritus generalised [Recovered/Resolved]
  - Injection site rash [Recovered/Resolved]
  - Urticaria [Recovered/Resolved]
  - Injection site bruising [Recovered/Resolved]
  - Hypersensitivity [Recovered/Resolved]
  - Hepatic enzyme increased [Recovered/Resolved]

NARRATIVE: CASE EVENT DATE: 2015
